FAERS Safety Report 21931076 (Version 2)
Quarter: 2023Q1

REPORT INFORMATION
  Report Type: Spontaneous
  Country: US (occurrence: US)
  Receive Date: 20230131
  Receipt Date: 20230227
  Transmission Date: 20230418
  Serious: Yes (Hospitalization, Other)
  Sender: FDA-Public Use
  Company Number: US-PFIZER INC-202300024596

PATIENT
  Age: 70 Year
  Sex: Male
  Weight: 117.93 kg

DRUGS (5)
  1. VYNDAQEL [Suspect]
     Active Substance: TAFAMIDIS MEGLUMINE
     Indication: Cardiac amyloidosis
     Dosage: 4 CAPSULES AT A TIME
     Dates: start: 201905, end: 20201231
  2. VYNDAQEL [Suspect]
     Active Substance: TAFAMIDIS MEGLUMINE
     Dosage: 4 CAPSULES AT A TIME (OUT OF HIS MEDICATION FOR THOSE 6 WEEKS, THEN TO 2021)
     Dates: start: 2021, end: 2021
  3. VYNDAMAX [Suspect]
     Active Substance: TAFAMIDIS
     Indication: Cardiac amyloidosis
     Dosage: 61 MG, 1X/DAY
     Route: 048
     Dates: start: 2021, end: 20230116
  4. VYNDAMAX [Suspect]
     Active Substance: TAFAMIDIS
     Indication: Amyloidosis
  5. LEVOFLOXACIN [Concomitant]
     Active Substance: LEVOFLOXACIN
     Dosage: 100 MG, 2X/DAY (100MG, 2 INJECTIONS A DAY)
     Dates: start: 20220601

REACTIONS (4)
  - Pulmonary embolism [Unknown]
  - Internal haemorrhage [Recovered/Resolved]
  - Deep vein thrombosis [Unknown]
  - Full blood count abnormal [Unknown]

NARRATIVE: CASE EVENT DATE: 20200101
